FAERS Safety Report 11983683 (Version 1)
Quarter: 2016Q1

REPORT INFORMATION
  Report Type: Spontaneous
  Country: GB (occurrence: GB)
  Receive Date: 20160201
  Receipt Date: 20160201
  Transmission Date: 20160526
  Serious: Yes (Other)
  Sender: FDA-Public Use
  Company Number: GB-TEVA-627929ACC

PATIENT
  Age: 76 Year
  Sex: Female
  Weight: 65 kg

DRUGS (11)
  1. CALCICHEW D3 [Concomitant]
     Active Substance: CALCIUM\CHOLECALCIFEROL
     Dosage: 2 DOSAGE FORMS DAILY;
     Dates: start: 20150728
  2. DERMOL [Concomitant]
     Active Substance: BENZALKONIUM CHLORIDE\CHLORHEXIDINE HYDROCHLORIDE\ISOPROPYL MYRISTATE\PARAFFIN
     Dosage: USE AS SOAP
     Dates: start: 20120315
  3. ESTROGENS, CONJUGATED AND MEDROXYPROGESTERONE ACETATE [Concomitant]
     Active Substance: ESTROGENS, CONJUGATED\MEDROXYPROGESTERONE ACETATE
     Dosage: 1 DOSAGE FORMS DAILY;
     Dates: start: 20130327, end: 20151026
  4. COCODAMOL [Concomitant]
     Active Substance: ACETAMINOPHEN\CODEINE PHOSPHATE
     Dosage: 8 DOSAGE FORMS DAILY;
     Dates: start: 20100629
  5. ALENDRONIC ACID [Suspect]
     Active Substance: ALENDRONIC ACID
     Dates: start: 20100629
  6. BETAMETHASONE VALERATE. [Concomitant]
     Active Substance: BETAMETHASONE VALERATE
     Dosage: 2 DOSAGE FORMS DAILY;
     Dates: start: 20150114
  7. DONEPEZIL HYDROCHLORIDE. [Concomitant]
     Active Substance: DONEPEZIL HYDROCHLORIDE
     Indication: AMNESIA
     Dosage: 1 DOSAGE FORMS DAILY;
     Dates: start: 20151104
  8. DULOXETINE. [Concomitant]
     Active Substance: DULOXETINE
     Dosage: 2 DOSAGE FORMS DAILY;
     Dates: start: 20140813
  9. OMEPRAZOLE. [Concomitant]
     Active Substance: OMEPRAZOLE
     Dosage: 1 DOSAGE FORMS DAILY;
     Dates: start: 20101110
  10. DIPROBASE [Concomitant]
     Active Substance: CHLOROCRESOL
     Dosage: APPLY AS NEEDED
     Dates: start: 20140604
  11. PEPPERMINT OIL [Concomitant]
     Active Substance: PEPPERMINT OIL
     Dosage: 3 DOSAGE FORMS DAILY;
     Dates: start: 20160113

REACTIONS (2)
  - Loose tooth [Unknown]
  - Osteonecrosis of jaw [Recovered/Resolved]

NARRATIVE: CASE EVENT DATE: 20160111
